FAERS Safety Report 22201887 (Version 1)
Quarter: 2023Q2

REPORT INFORMATION
  Report Type: Spontaneous
  Country: JP (occurrence: JP)
  Receive Date: 20230412
  Receipt Date: 20230412
  Transmission Date: 20230722
  Serious: Yes (Other)
  Sender: FDA-Public Use
  Company Number: JP-002147023-NVSJ2023JP005804

PATIENT
  Sex: Female

DRUGS (1)
  1. NEORAL [Suspect]
     Active Substance: CYCLOSPORINE
     Indication: Scleritis
     Dosage: 75 MG
     Route: 048

REACTIONS (4)
  - Renal impairment [Unknown]
  - Weight decreased [Unknown]
  - Immunosuppressant drug level decreased [Unknown]
  - Off label use [Unknown]
